FAERS Safety Report 6368804-6 (Version None)
Quarter: 2009Q3

REPORT INFORMATION
  Report Type: 
  Country: None (occurrence: None)
  Receive Date: 20090916
  Receipt Date: 20090901
  Transmission Date: 20100115
  Serious: Yes (Hospitalization)
  Sender: FDA-Public Use
  Company Number: MOZO-1000246

PATIENT
  Age: 69 Year
  Sex: Male
  Weight: 77.8 kg

DRUGS (2)
  1. MOZOBIL [Suspect]
     Indication: HAEMATOPOIETIC STEM CELL MOBILISATION
     Dosage: INTRAVENOUS
     Route: 042
  2. GRANULOCYTE COLONY STIMULATING FACTOR (GRANULOCYTE COLONY STIMULATING [Concomitant]

REACTIONS (4)
  - BLOOD POTASSIUM DECREASED [None]
  - CLOSTRIDIUM DIFFICILE COLITIS [None]
  - CLOSTRIDIUM DIFFICILE TOXIN TEST POSITIVE [None]
  - LABORATORY TEST INTERFERENCE [None]
